FAERS Safety Report 4661654-8 (Version None)
Quarter: 2005Q2

REPORT INFORMATION
  Report Type: 
  Country: None (occurrence: None)
  Receive Date: 20050511
  Receipt Date: 20050511
  Transmission Date: 20051028
  Serious: Yes (Hospitalization)
  Sender: FDA-Public Use
  Company Number: None

PATIENT
  Age: 77 Year
  Sex: Male

DRUGS (7)
  1. WARFARIN [Suspect]
     Indication: THROMBOSIS PROPHYLAXIS
     Dosage: 4 MG QD
     Dates: start: 20010828
  2. DIGOXIN [Concomitant]
  3. MECLIZINE [Concomitant]
  4. CODEINE [Concomitant]
  5. AUGMENTIN '125' [Concomitant]
  6. B12 [Concomitant]
  7. SERTRALINE HCL [Concomitant]

REACTIONS (1)
  - INTERNATIONAL NORMALISED RATIO INCREASED [None]
